FAERS Safety Report 8258219-8 (Version None)
Quarter: 2012Q2

REPORT INFORMATION
  Report Type: 
  Country: None (occurrence: None)
  Receive Date: 20120404
  Receipt Date: 20120329
  Transmission Date: 20120825
  Serious: Yes (Hospitalization, Other)
  Sender: FDA-Public Use
  Company Number: US-AMGEN-USASP2011042432

PATIENT
  Age: 47 Year
  Sex: Female
  Weight: 63.039 kg

DRUGS (2)
  1. ENBREL [Suspect]
     Indication: RHEUMATOID ARTHRITIS
     Dosage: 50 MG, QWK
     Route: 058
     Dates: start: 20000101
  2. TAMOXIFEN CITRATE [Concomitant]
     Indication: BREAST CANCER IN SITU
     Dosage: UNK

REACTIONS (11)
  - BREAST CANCER [None]
  - UTERINE MASS [None]
  - NASOPHARYNGITIS [None]
  - MENINGIOMA [None]
  - BREAST RECONSTRUCTION [None]
  - ATTENTION DEFICIT/HYPERACTIVITY DISORDER [None]
  - MENORRHAGIA [None]
  - DRUG HYPERSENSITIVITY [None]
  - RHEUMATOID ARTHRITIS [None]
  - HAIR GROWTH ABNORMAL [None]
  - DYSMENORRHOEA [None]
